FAERS Safety Report 21528169 (Version 1)
Quarter: 2022Q4

REPORT INFORMATION
  Report Type: Spontaneous
  Country: US (occurrence: US)
  Receive Date: 20221031
  Receipt Date: 20221031
  Transmission Date: 20230113
  Serious: No
  Sender: FDA-Public Use
  Company Number: US-RECKITT BENCKISER HEALTHCARE INT LIMITED-RB-98316-2021

PATIENT
  Age: 76 Year
  Sex: Male
  Weight: 95.238 kg

DRUGS (3)
  1. MUCINEX [Suspect]
     Active Substance: GUAIFENESIN
     Indication: Bronchitis
     Dosage: AS DIRECTED
     Route: 048
     Dates: start: 2021, end: 2021
  2. MUCINEX [Suspect]
     Active Substance: GUAIFENESIN
     Indication: Cough
  3. MUCINEX [Suspect]
     Active Substance: GUAIFENESIN
     Indication: Productive cough

REACTIONS (2)
  - Condition aggravated [Recovered/Resolved]
  - Product use in unapproved indication [Recovered/Resolved]

NARRATIVE: CASE EVENT DATE: 20210101
